FAERS Safety Report 5847206-2 (Version None)
Quarter: 2008Q3

REPORT INFORMATION
  Report Type: 
  Country: None (occurrence: None)
  Receive Date: 20080815
  Receipt Date: 20080813
  Transmission Date: 20090109
  Serious: Yes (Other)
  Sender: FDA-Public Use
  Company Number: AU-ASTRAZENECA-2008AP06211

PATIENT

DRUGS (1)
  1. XYLOCAINE [Suspect]
     Route: 042

REACTIONS (1)
  - NERVOUS SYSTEM DISORDER [None]
